FAERS Safety Report 13003250 (Version 1)
Quarter: 2016Q4

REPORT INFORMATION
  Report Type: Spontaneous
  Country: FR (occurrence: FR)
  Receive Date: 20161206
  Receipt Date: 20161206
  Transmission Date: 20170207
  Serious: Yes (Hospitalization, Other)
  Sender: FDA-Public Use
  Company Number: FR-BRISTOL-MYERS SQUIBB COMPANY-BMS-2016-100882

PATIENT
  Age: 86 Year
  Sex: Female

DRUGS (1)
  1. COUMADINE [Suspect]
     Active Substance: WARFARIN SODIUM
     Indication: ATRIAL FIBRILLATION
     Route: 048

REACTIONS (7)
  - Rectal haemorrhage [Recovered/Resolved]
  - Packed red blood cell transfusion [Unknown]
  - Lung disorder [Unknown]
  - Cardiac failure [Unknown]
  - Respiratory distress [Unknown]
  - Altered state of consciousness [Unknown]
  - Melaena [Recovered/Resolved]

NARRATIVE: CASE EVENT DATE: 20150913
